FAERS Safety Report 21476406 (Version 1)
Quarter: 2022Q4

REPORT INFORMATION
  Report Type: Spontaneous
  Country: FR (occurrence: FR)
  Receive Date: 20221019
  Receipt Date: 20221019
  Transmission Date: 20230113
  Serious: Yes (Other)
  Sender: FDA-Public Use
  Company Number: None

PATIENT
  Age: 37 Year
  Sex: Female
  Weight: 80 kg

DRUGS (2)
  1. TAFINLAR [Suspect]
     Active Substance: DABRAFENIB MESYLATE
     Indication: Malignant melanoma
     Dosage: 2 DOSAGE FORM, QD
     Route: 048
     Dates: start: 20220913
  2. MEKINIST [Suspect]
     Active Substance: TRAMETINIB DIMETHYL SULFOXIDE
     Indication: Metastatic malignant melanoma
     Dosage: 1 DOSAGE FORM, QD
     Route: 048
     Dates: start: 20220913

REACTIONS (4)
  - Hyperthermia [Recovered/Resolved]
  - Abdominal pain [Recovered/Resolved]
  - Myalgia [Recovered/Resolved]
  - Panniculitis [Recovering/Resolving]

NARRATIVE: CASE EVENT DATE: 20220917
